FAERS Safety Report 9153115 (Version 1)
Quarter: 2013Q1

REPORT INFORMATION
  Report Type: Spontaneous
  Country: US (occurrence: None)
  Receive Date: 20130304
  Receipt Date: 20130304
  Transmission Date: 20140127
  Serious: Yes (Other)
  Sender: FDA-Public Use
  Company Number: None

PATIENT
  Age: 8 Year
  Sex: Male
  Weight: 26.31 kg

DRUGS (2)
  1. TAMIFLU [Suspect]
     Indication: INFLUENZA
     Dosage: 2 TEASPOONS DAILY PO
     Route: 048
     Dates: start: 20130226, end: 20130226
  2. TAMIFLU [Suspect]
     Dosage: 2 TEASPOONS DAILY PO
     Route: 048
     Dates: start: 20130226, end: 20130226

REACTIONS (4)
  - Vomiting [None]
  - Abnormal behaviour [None]
  - Delusion [None]
  - Aggression [None]
